FAERS Safety Report 17421292 (Version 1)
Quarter: 2020Q1

REPORT INFORMATION
  Report Type: Report from Study
  Country: US (occurrence: US)
  Receive Date: 20200214
  Receipt Date: 20200214
  Transmission Date: 20200409
  Serious: Yes (Other)
  Sender: FDA-Public Use
  Company Number: US-PFIZER INC-2020042946

PATIENT
  Age: 53 Year
  Sex: Female

DRUGS (2)
  1. FUROSEMIDE. [Suspect]
     Active Substance: FUROSEMIDE
     Dosage: UNK
  2. MELPHALAN. [Concomitant]
     Active Substance: MELPHALAN
     Indication: AMYLOIDOSIS
     Dosage: UNK(HIGH DOSE)

REACTIONS (4)
  - Sarcoidosis [Unknown]
  - Pyuria [Unknown]
  - Nephritis allergic [Recovering/Resolving]
  - Acute kidney injury [Recovering/Resolving]
